FAERS Safety Report 4789011-4 (Version None)
Quarter: 2005Q3

REPORT INFORMATION
  Report Type: 
  Country: None (occurrence: None)
  Receive Date: 20050915
  Receipt Date: 20050802
  Transmission Date: 20060218
  Serious: No
  Sender: FDA-Public Use
  Company Number: BDI-007429

PATIENT
  Age: 63 Year
  Sex: Male
  Weight: 76 kg

DRUGS (9)
  1. MULTIHANCE [Suspect]
     Indication: MUSCLE SPASMS
     Dosage: 15 ML NA IV
     Route: 042
     Dates: start: 20050801, end: 20050801
  2. MULTIHANCE [Suspect]
     Indication: NUCLEAR MAGNETIC RESONANCE IMAGING
     Dosage: 15 ML NA IV
     Route: 042
     Dates: start: 20050801, end: 20050801
  3. SYNTHROID [Concomitant]
  4. CLONAZEPAM [Concomitant]
  5. LESCOL [Concomitant]
  6. TIMOLOL MALEATE [Concomitant]
  7. ALPHAGAN [Concomitant]
  8. ASACOL [Concomitant]
  9. PERCOCET [Concomitant]

REACTIONS (1)
  - URTICARIA [None]
